FAERS Safety Report 9384308 (Version 1)
Quarter: 2013Q3

REPORT INFORMATION
  Report Type: Spontaneous
  Country: JP (occurrence: JP)
  Receive Date: 20130705
  Receipt Date: 20130705
  Transmission Date: 20140515
  Serious: Yes (Hospitalization)
  Sender: FDA-Public Use
  Company Number: PHHY2013JP054927

PATIENT
  Age: 89 Year
  Sex: Female

DRUGS (3)
  1. EXELON PATCH [Suspect]
     Indication: DEMENTIA ALZHEIMER^S TYPE
     Dosage: 18 MG, DAILY
     Route: 062
  2. EXELON PATCH [Suspect]
     Dosage: 4.5 MG, DAILY
     Route: 062
     Dates: start: 20130531
  3. ARICEPT [Suspect]
     Dosage: 5 MG, UNK
     Route: 048
     Dates: start: 20130524, end: 20130530

REACTIONS (3)
  - Transient ischaemic attack [Recovering/Resolving]
  - Dementia [Unknown]
  - Agitation [Recovered/Resolved]
